FAERS Safety Report 16760947 (Version 1)
Quarter: 2019Q3

REPORT INFORMATION
  Report Type: Spontaneous
  Country: MX (occurrence: MX)
  Receive Date: 20190830
  Receipt Date: 20190830
  Transmission Date: 20191005
  Serious: Yes (Other)
  Sender: FDA-Public Use
  Company Number: MX-B.I. PHARMACEUTICALS,INC./RIDGEFIELD-2019-BI-035171

PATIENT
  Age: 54 Year
  Sex: Male

DRUGS (1)
  1. TRAYENTA [Suspect]
     Active Substance: LINAGLIPTIN
     Indication: PRODUCT USED FOR UNKNOWN INDICATION
     Route: 065

REACTIONS (3)
  - Fatigue [Unknown]
  - Hepatitis [Unknown]
  - Polyuria [Unknown]
